FAERS Safety Report 14992700 (Version 1)
Quarter: 2018Q2

REPORT INFORMATION
  Report Type: Spontaneous
  Country: US (occurrence: US)
  Receive Date: 20180517
  Receipt Date: 20180517
  Transmission Date: 20180711
  Serious: No
  Sender: FDA-Public Use
  Company Number: None

PATIENT
  Age: 40 Year

DRUGS (1)
  1. TRACLEER [Suspect]
     Active Substance: BOSENTAN
     Indication: PULMONARY ARTERIAL HYPERTENSION
     Route: 048
     Dates: start: 20160402

REACTIONS (6)
  - Diarrhoea haemorrhagic [None]
  - Nausea [None]
  - Pneumonia [None]
  - Menstruation irregular [None]
  - Bronchitis [None]
  - Abdominal pain [None]

NARRATIVE: CASE EVENT DATE: 20180430
